FAERS Safety Report 14261820 (Version 2)
Quarter: 2018Q1

REPORT INFORMATION
  Report Type: Spontaneous
  Country: HK (occurrence: HK)
  Receive Date: 20171208
  Receipt Date: 20180102
  Transmission Date: 20180508
  Serious: Yes (Death, Life-Threatening, Other)
  Sender: FDA-Public Use
  Company Number: HK-GLENMARK PHARMACEUTICALS-2017GMK029948

PATIENT
  Age: 18 Year
  Sex: Male

DRUGS (10)
  1. MEROPENEM. [Suspect]
     Active Substance: MEROPENEM
     Indication: PNEUMONIA KLEBSIELLA
     Dosage: UNK
     Route: 065
  2. EPINEPHRINE. [Suspect]
     Active Substance: EPINEPHRINE
     Indication: BLOOD PRESSURE MANAGEMENT
     Dosage: 0.12 ?G/KG, PER MIN
     Route: 065
  3. DOPAMINE [Suspect]
     Active Substance: DOPAMINE\DOPAMINE HYDROCHLORIDE
     Dosage: 6.8 ?G/KG, PER MIN
     Route: 065
  4. NOREPINEPHRINE. [Suspect]
     Active Substance: NOREPINEPHRINE
     Indication: BLOOD PRESSURE MANAGEMENT
     Dosage: 0.07 ?G/KG, PER MIN
     Route: 065
  5. HYDROCORTISONE. [Suspect]
     Active Substance: HYDROCORTISONE
     Indication: CORTISOL DEFICIENCY
     Dosage: UNK
     Route: 065
  6. ACICLOVIR [Suspect]
     Active Substance: ACYCLOVIR
     Indication: PRODUCT USED FOR UNKNOWN INDICATION
     Dosage: UNK
     Route: 065
  7. DOPAMINE [Suspect]
     Active Substance: DOPAMINE\DOPAMINE HYDROCHLORIDE
     Indication: BLOOD PRESSURE MANAGEMENT
     Dosage: 20 ?G/KG, PER MIN
     Route: 065
  8. FLUCONAZOLE. [Suspect]
     Active Substance: FLUCONAZOLE
     Indication: PROPHYLAXIS
     Dosage: UNK
     Route: 065
  9. AMIKACIN [Concomitant]
     Active Substance: AMIKACIN
     Indication: PNEUMONIA KLEBSIELLA
     Dosage: UNK
     Route: 065
  10. VANCOMYCIN [Suspect]
     Active Substance: VANCOMYCIN
     Indication: PNEUMONIA KLEBSIELLA
     Dosage: UNK
     Route: 065

REACTIONS (1)
  - Drug ineffective [Fatal]
